FAERS Safety Report 5010932-1 (Version None)
Quarter: 2006Q2

REPORT INFORMATION
  Report Type: 
  Country: None (occurrence: None)
  Receive Date: 20060525
  Receipt Date: 20060515
  Transmission Date: 20061013
  Serious: Yes (Other)
  Sender: FDA-Public Use
  Company Number: IT-BRISTOL-MYERS SQUIBB COMPANY-13377601

PATIENT
  Age: 55 Year
  Sex: Female

DRUGS (3)
  1. METHOTREXATE [Suspect]
     Indication: POLYARTHRITIS
  2. BOSENTAN [Suspect]
     Indication: PULMONARY HYPERTENSION
     Route: 048
  3. METHYLPREDNISOLONE [Concomitant]
     Indication: POLYARTHRITIS

REACTIONS (2)
  - ARTHRITIS [None]
  - DRUG INTERACTION [None]
